FAERS Safety Report 7779425-2 (Version None)
Quarter: 2011Q3

REPORT INFORMATION
  Report Type: 
  Country: None (occurrence: None)
  Receive Date: 20110927
  Receipt Date: 20110922
  Transmission Date: 20111222
  Serious: No
  Sender: FDA-Public Use
  Company Number: US-BIOGENIDEC-2011BI024508

PATIENT
  Sex: Female

DRUGS (2)
  1. TYSABRI [Suspect]
     Indication: MULTIPLE SCLEROSIS
     Route: 042
     Dates: start: 20071204
  2. AVONEX [Concomitant]
     Indication: MULTIPLE SCLEROSIS
     Route: 030

REACTIONS (9)
  - VISION BLURRED [None]
  - SPEECH DISORDER [None]
  - WEIGHT DECREASED [None]
  - AMNESIA [None]
  - EMOTIONAL DISTRESS [None]
  - EMOTIONAL DISORDER [None]
  - COGNITIVE DISORDER [None]
  - MEMORY IMPAIRMENT [None]
  - DIZZINESS [None]
